FAERS Safety Report 14221885 (Version 2)
Quarter: 2019Q3

REPORT INFORMATION
  Report Type: Report from Study
  Country: JP (occurrence: JP)
  Receive Date: 20171124
  Receipt Date: 20190809
  Transmission Date: 20191004
  Serious: Yes (Hospitalization, Other)
  Sender: FDA-Public Use
  Company Number: JP-VIFOR (INTERNATIONAL) INC.-VIT-2017-12885

PATIENT
  Age: 77 Year
  Sex: Female
  Weight: 48.4 kg

DRUGS (20)
  1. VELPHORO [Suspect]
     Active Substance: FERRIC OXYHYDROXIDE
     Route: 048
     Dates: start: 20170217, end: 20170226
  2. ONEALFA [Concomitant]
     Active Substance: ALFACALCIDOL
     Route: 048
  3. CARDENARIN OD [Concomitant]
     Route: 048
     Dates: start: 20170310
  4. EFIENT [Concomitant]
     Active Substance: PRASUGREL HYDROCHLORIDE
     Route: 048
  5. ADALAT CR40 [Concomitant]
     Route: 048
  6. EPOETIN ALFA [Concomitant]
     Active Substance: ERYTHROPOIETIN
  7. VELPHORO [Suspect]
     Active Substance: FERRIC OXYHYDROXIDE
     Indication: HYPERPHOSPHATAEMIA
     Route: 048
     Dates: start: 20170210, end: 20170216
  8. CLARITIN REDITABS [Concomitant]
     Active Substance: LORATADINE
     Route: 048
  9. RIIDAI [Concomitant]
     Indication: PROPHYLAXIS AGAINST DIARRHOEA
     Route: 048
     Dates: start: 20170317
  10. AZILVA [Concomitant]
     Active Substance: AZILSARTAN KAMEDOXOMIL
     Route: 048
     Dates: start: 20170210, end: 20170310
  11. BAYASPIRIN [Concomitant]
     Active Substance: ASPIRIN
     Route: 048
  12. CALTAN OD [Concomitant]
     Indication: HYPERPHOSPHATAEMIA
     Route: 048
     Dates: start: 20170320
  13. CARDENARIN OD [Concomitant]
     Route: 048
     Dates: end: 20170310
  14. VELPHORO [Suspect]
     Active Substance: FERRIC OXYHYDROXIDE
     Route: 048
     Dates: start: 20170227, end: 20180830
  15. TSUMURA DAIKENCHUTO [Concomitant]
     Active Substance: HERBALS
     Route: 048
  16. KAYEXALATE [Concomitant]
     Active Substance: SODIUM POLYSTYRENE SULFONATE
     Route: 048
  17. GASTER [Concomitant]
     Active Substance: FAMOTIDINE
     Indication: GASTRITIS PROPHYLAXIS
     Route: 048
  18. AZILVA [Concomitant]
     Active Substance: AZILSARTAN KAMEDOXOMIL
     Route: 048
     Dates: start: 20170310
  19. ROHYPNOL [Concomitant]
     Active Substance: FLUNITRAZEPAM
     Route: 048
  20. NESP [Concomitant]
     Active Substance: DARBEPOETIN ALFA

REACTIONS (5)
  - Transient ischaemic attack [Recovered/Resolved]
  - Sinus node dysfunction [Recovering/Resolving]
  - Bradycardia [Recovering/Resolving]
  - Hypertension [Recovering/Resolving]
  - Serum ferritin increased [Recovered/Resolved]

NARRATIVE: CASE EVENT DATE: 20170310
